FAERS Safety Report 8494393-6 (Version None)
Quarter: 2012Q2

REPORT INFORMATION
  Report Type: 
  Country: None (occurrence: None)
  Receive Date: 20120628
  Receipt Date: 20120615
  Transmission Date: 20120825
  Serious: Yes (Hospitalization, Other)
  Sender: FDA-Public Use
  Company Number: 2012P1044187

PATIENT
  Age: 23 Month
  Sex: Male
  Weight: 13 kg

DRUGS (1)
  1. FLECAINIDE ACETATE [Suspect]
     Indication: SUPRAVENTRICULAR TACHYCARDIA
     Dosage: 60 BID;120 MG, X1

REACTIONS (6)
  - INCORRECT DOSE ADMINISTERED [None]
  - BUNDLE BRANCH BLOCK RIGHT [None]
  - BUNDLE BRANCH BLOCK LEFT [None]
  - ELECTROCARDIOGRAM QT PROLONGED [None]
  - ELECTROCARDIOGRAM QRS COMPLEX PROLONGED [None]
  - DRUG LEVEL INCREASED [None]
